FAERS Safety Report 4723142-X (Version None)
Quarter: 2005Q3

REPORT INFORMATION
  Report Type: 
  Country: None (occurrence: None)
  Receive Date: 20050722
  Receipt Date: 20050714
  Transmission Date: 20060218
  Serious: Yes (Life-Threatening)
  Sender: FDA-Public Use
  Company Number: PT-MERCK-0507PRT00005

PATIENT
  Age: 44 Year
  Sex: Female
  Weight: 40 kg

DRUGS (2)
  1. CANCIDAS [Suspect]
     Indication: CANDIDIASIS
     Route: 042
     Dates: start: 20050107, end: 20050119
  2. SULFAMETHOXAZOLE AND TRIMETHOPRIM [Concomitant]
     Indication: PROPHYLAXIS
     Route: 065
     Dates: start: 19940101

REACTIONS (1)
  - PANCYTOPENIA [None]
